FAERS Safety Report 7553984-7 (Version None)
Quarter: 2011Q2

REPORT INFORMATION
  Report Type: 
  Country: None (occurrence: None)
  Receive Date: 20110617
  Receipt Date: 20110614
  Transmission Date: 20111010
  Serious: Yes (Death, Life-Threatening, Hospitalization)
  Sender: FDA-Public Use
  Company Number: FR-B.I. PHARMACEUTICALS,INC./RIDGEFIELD-2011-FF-00577FF

PATIENT
  Sex: Female

DRUGS (5)
  1. ARAVA [Concomitant]
     Indication: RHEUMATOID ARTHRITIS
     Dosage: 20 MG
     Route: 048
  2. ACTEMRA [Suspect]
     Indication: RHEUMATOID ARTHRITIS
     Dosage: 20MG/ML
     Route: 042
     Dates: start: 20101215, end: 20110112
  3. NICARDIPINE HCL [Concomitant]
     Indication: HYPERTENSION
     Dosage: 40 MG
     Route: 048
  4. MOBIC [Suspect]
     Dosage: 15 MG
     Route: 048
     Dates: start: 20110112
  5. ASPIRIN [Suspect]
     Indication: CARDIOVASCULAR EVENT PROPHYLAXIS
     Dosage: 75 MG
     Route: 048

REACTIONS (4)
  - MALAISE [None]
  - CEREBRAL HAEMATOMA [None]
  - HAEMORRHAGIC STROKE [None]
  - FALL [None]
